FAERS Safety Report 16244225 (Version 1)
Quarter: 2019Q2

REPORT INFORMATION
  Report Type: Spontaneous
  Country: GB (occurrence: GB)
  Receive Date: 20190426
  Receipt Date: 20190426
  Transmission Date: 20190711
  Serious: Yes (Other)
  Sender: FDA-Public Use
  Company Number: GB-MYLANLABS-2019M1038065

PATIENT
  Age: 62 Year
  Sex: Male

DRUGS (8)
  1. POTASSIUM CITRATE. [Concomitant]
     Active Substance: POTASSIUM CITRATE
     Dosage: UNK
  2. FLUOXETINE [Suspect]
     Active Substance: FLUOXETINE HYDROCHLORIDE
     Indication: DEPRESSED MOOD
     Dosage: 20 MILLIGRAM, QD
     Route: 048
     Dates: start: 20171101, end: 20171103
  3. PARACETAMOL [Concomitant]
     Active Substance: ACETAMINOPHEN
     Dosage: UNK
  4. ATORVASTATIN [Concomitant]
     Active Substance: ATORVASTATIN
     Dosage: UNK
  5. LANSOPRAZOLE. [Concomitant]
     Active Substance: LANSOPRAZOLE
     Dosage: UNK
  6. SOLIFENACIN [Concomitant]
     Active Substance: SOLIFENACIN
  7. FINASTERIDE. [Concomitant]
     Active Substance: FINASTERIDE
     Dosage: UNK
  8. TAMSULOSIN [Concomitant]
     Active Substance: TAMSULOSIN
     Dosage: UNK

REACTIONS (4)
  - Genital burning sensation [Recovered/Resolved with Sequelae]
  - Burning sensation [Recovered/Resolved with Sequelae]
  - Penile burning sensation [Recovered/Resolved with Sequelae]
  - Pain [Unknown]

NARRATIVE: CASE EVENT DATE: 20171101
